FAERS Safety Report 4832137-7 (Version None)
Quarter: 2005Q4

REPORT INFORMATION
  Report Type: 
  Country: None (occurrence: None)
  Receive Date: 20051118
  Receipt Date: 20050810
  Transmission Date: 20060501
  Serious: Yes (Hospitalization)
  Sender: FDA-Public Use
  Company Number: US-MERCK-0508USA02130

PATIENT
  Age: 51 Year
  Sex: Male
  Weight: 89 kg

DRUGS (7)
  1. VIOXX [Suspect]
     Indication: ARTHRITIS
     Route: 048
     Dates: start: 20010101, end: 20040601
  2. VIOXX [Suspect]
     Route: 048
     Dates: start: 20000101, end: 20040101
  3. VIOXX [Suspect]
     Route: 048
     Dates: start: 20010101
  4. PERCOCET [Concomitant]
     Indication: BACK PAIN
     Route: 048
     Dates: end: 20050201
  5. VALIUM [Concomitant]
     Indication: ANXIETY
     Route: 048
     Dates: end: 20050201
  6. CELEBREX [Concomitant]
     Indication: ARTHRITIS
     Route: 065
  7. OXYCONTIN [Concomitant]
     Indication: BACK PAIN
     Route: 065

REACTIONS (52)
  - ACUTE MYOCARDIAL INFARCTION [None]
  - ANAEMIA [None]
  - ANGINA PECTORIS [None]
  - AORTIC VALVE INCOMPETENCE [None]
  - ARTERIOSCLEROSIS [None]
  - ASTHMA [None]
  - ATELECTASIS [None]
  - BLOOD PRESSURE INCREASED [None]
  - BRONCHITIS ACUTE [None]
  - CARDIAC DISORDER [None]
  - CARDIAC FAILURE CONGESTIVE [None]
  - CEREBROVASCULAR ACCIDENT [None]
  - CERVICAL SPINAL STENOSIS [None]
  - CHEST DISCOMFORT [None]
  - CHEST PAIN [None]
  - CHRONIC OBSTRUCTIVE PULMONARY DISEASE [None]
  - CONDITION AGGRAVATED [None]
  - CONSTIPATION [None]
  - CORONARY ARTERY DISEASE [None]
  - DEPRESSION [None]
  - DRUG ABUSER [None]
  - ECZEMA [None]
  - FALL [None]
  - GASTRITIS [None]
  - GASTROENTERITIS [None]
  - GASTROINTESTINAL HAEMORRHAGE [None]
  - GLUCOSE TOLERANCE IMPAIRED [None]
  - GRIP STRENGTH DECREASED [None]
  - HAEMATOCHEZIA [None]
  - HAEMOPTYSIS [None]
  - HAEMORRHAGE [None]
  - HYPOTENSION [None]
  - MEMORY IMPAIRMENT [None]
  - MENTAL STATUS CHANGES [None]
  - MITRAL VALVE INCOMPETENCE [None]
  - MYELOPATHY [None]
  - MYOCARDIAL INFARCTION [None]
  - NECK PAIN [None]
  - NERVE INJURY [None]
  - OSTEOPENIA [None]
  - PNEUMONIA [None]
  - RENAL DISORDER [None]
  - RENAL FAILURE ACUTE [None]
  - RENAL FAILURE CHRONIC [None]
  - RENAL INJURY [None]
  - RIB FRACTURE [None]
  - SINUS BRADYCARDIA [None]
  - SPINAL CORD INJURY [None]
  - STRESS [None]
  - SYNCOPE [None]
  - TINEA INFECTION [None]
  - TRANSIENT ISCHAEMIC ATTACK [None]
